FAERS Safety Report 10242844 (Version 1)
Quarter: 2014Q2

REPORT INFORMATION
  Report Type: Spontaneous
  Country: GB (occurrence: GB)
  Receive Date: 20140618
  Receipt Date: 20140618
  Transmission Date: 20141212
  Serious: Yes (Other)
  Sender: FDA-Public Use
  Company Number: PHHY2014GB070234

PATIENT
  Age: 38 Year
  Sex: Female

DRUGS (2)
  1. HYDRALAZINE [Suspect]
     Indication: HYPERTENSION
  2. MAGNESIUM SULFATE [Suspect]
     Indication: ECLAMPSIA

REACTIONS (12)
  - Microangiopathic haemolytic anaemia [Unknown]
  - Haemolysis [Unknown]
  - Blood lactate dehydrogenase increased [Unknown]
  - Blood bilirubin increased [Unknown]
  - Thrombocytopenia [Unknown]
  - Haemoglobin decreased [Unknown]
  - Alanine aminotransferase increased [Unknown]
  - Disseminated intravascular coagulation [Unknown]
  - Renal failure acute [Unknown]
  - Blood alkaline phosphatase increased [Unknown]
  - Normal newborn [Unknown]
  - Maternal exposure timing unspecified [Unknown]
